FAERS Safety Report 20607746 (Version 1)
Quarter: 2022Q1

REPORT INFORMATION
  Report Type: Spontaneous
  Country: US (occurrence: US)
  Receive Date: 20220317
  Receipt Date: 20220317
  Transmission Date: 20220423
  Serious: Yes (Other)
  Sender: FDA-Public Use
  Company Number: US-JOURNEY MEDICAL CORPORATION-2022JNY00617

PATIENT
  Sex: Female
  Weight: 97.052 kg

DRUGS (6)
  1. QBREXZA [Suspect]
     Active Substance: GLYCOPYRRONIUM TOSYLATE
     Indication: Hyperhidrosis
     Dosage: 1 TIME USE UNDER ARMS
     Route: 061
     Dates: start: 20220301, end: 20220301
  2. ESTRADIOL [Concomitant]
     Active Substance: ESTRADIOL
     Indication: Hormone replacement therapy
  3. VITAMINS [Concomitant]
     Active Substance: VITAMINS
  4. COLLAGEN [Concomitant]
     Active Substance: COLLAGEN
  5. HERBALS\TURMERIC [Concomitant]
     Active Substance: HERBALS\TURMERIC
     Indication: Inflammation
  6. VITAMIN D3 [Concomitant]
     Active Substance: CHOLECALCIFEROL

REACTIONS (13)
  - Loss of consciousness [Recovered/Resolved]
  - Urinary retention [Recovered/Resolved]
  - Small intestinal obstruction [Recovered/Resolved]
  - Flushing [Recovered/Resolved]
  - Hyperthermia [Recovered/Resolved]
  - Dehydration [Recovered/Resolved]
  - Abdominal pain [Recovered/Resolved]
  - Vomiting [Recovered/Resolved]
  - Gastrointestinal pain [Recovered/Resolved]
  - Pain [Recovered/Resolved]
  - Abdominal distension [Recovered/Resolved]
  - Dry mouth [Recovered/Resolved]
  - Constipation [Recovered/Resolved]

NARRATIVE: CASE EVENT DATE: 20220301
